FAERS Safety Report 14923642 (Version 1)
Quarter: 2018Q2

REPORT INFORMATION
  Report Type: Spontaneous
  Country: US (occurrence: US)
  Receive Date: 20180522
  Receipt Date: 20180522
  Transmission Date: 20180711
  Serious: Yes (Death, Hospitalization, Other)
  Sender: FDA-Public Use
  Company Number: US-B.I. PHARMACEUTICALS,INC./RIDGEFIELD-2018-BI-027007

PATIENT
  Age: 83 Year
  Sex: Female

DRUGS (1)
  1. MICARDIS [Suspect]
     Active Substance: TELMISARTAN
     Indication: PRODUCT USED FOR UNKNOWN INDICATION
     Dosage: STRENGTH: 80 MG;  ADMINISTRATION CORRECT? NR, ACTION(S) TAKEN WITH PRODUCT: NOT REPORTED
     Route: 048

REACTIONS (4)
  - Cardiac failure congestive [Unknown]
  - Death [Fatal]
  - Renal failure [Unknown]
  - Pneumonia [Unknown]

NARRATIVE: CASE EVENT DATE: 20180418
